FAERS Safety Report 16502258 (Version 1)
Quarter: 2019Q3

REPORT INFORMATION
  Report Type: Spontaneous
  Country: US (occurrence: US)
  Receive Date: 20190630
  Receipt Date: 20190630
  Transmission Date: 20191004
  Serious: No
  Sender: FDA-Public Use
  Company Number: None

PATIENT
  Age: 32 Year
  Sex: Male
  Weight: 72 kg

DRUGS (4)
  1. VIVITROL [Suspect]
     Active Substance: NALTREXONE
     Indication: DRUG USE DISORDER
     Dosage: ?          OTHER FREQUENCY:EVERY FOUR WEEKS;?
     Route: 030
     Dates: start: 20190613
  2. MULTIVITAMINS [Concomitant]
     Active Substance: VITAMINS
  3. CHANTIX [Concomitant]
     Active Substance: VARENICLINE TARTRATE
  4. DOXYCYCLINE HYCLATE. [Concomitant]
     Active Substance: DOXYCYCLINE HYCLATE

REACTIONS (2)
  - Injection site swelling [None]
  - Product use issue [None]

NARRATIVE: CASE EVENT DATE: 20190613
